FAERS Safety Report 10542201 (Version 1)
Quarter: 2014Q4

REPORT INFORMATION
  Report Type: Report from Study
  Country: AR (occurrence: AR)
  Receive Date: 20141024
  Receipt Date: 20141024
  Transmission Date: 20150529
  Serious: Yes (Hospitalization, Other)
  Sender: FDA-Public Use
  Company Number: PHHY2014AR139299

PATIENT
  Age: 86 Year
  Sex: Female

DRUGS (3)
  1. EXFORGE [Suspect]
     Active Substance: AMLODIPINE BESYLATE\VALSARTAN
     Indication: CARDIOVASCULAR DISORDER
     Dosage: 1 DF, QD
     Route: 048
     Dates: start: 2013
  2. EXFORGE [Suspect]
     Active Substance: AMLODIPINE BESYLATE\VALSARTAN
     Indication: SURGERY
  3. EXFORGE [Suspect]
     Active Substance: AMLODIPINE BESYLATE\VALSARTAN
     Indication: OFF LABEL USE

REACTIONS (9)
  - Oedema peripheral [Not Recovered/Not Resolved]
  - Pain [Unknown]
  - Joint dislocation [Recovering/Resolving]
  - Fear [Unknown]
  - Nervousness [Unknown]
  - Arthropathy [Recovering/Resolving]
  - Scab [Unknown]
  - Fall [Unknown]
  - Hypokinesia [Unknown]

NARRATIVE: CASE EVENT DATE: 2013
